FAERS Safety Report 10230617 (Version 2)
Quarter: 2014Q2

REPORT INFORMATION
  Report Type: Spontaneous
  Country: BR (occurrence: BR)
  Receive Date: 20140611
  Receipt Date: 20140611
  Transmission Date: 20141212
  Serious: Yes (Other)
  Sender: FDA-Public Use
  Company Number: BR-PFIZER INC-2014147234

PATIENT
  Age: 51 Year
  Sex: Male

DRUGS (1)
  1. CELEBRA [Suspect]
     Indication: OSTEITIS
     Dosage: 400 MG 1X/DAY
     Route: 048
     Dates: start: 2012

REACTIONS (3)
  - Joint injury [Unknown]
  - Ligament sprain [Unknown]
  - Knee deformity [Unknown]
